FAERS Safety Report 7274374-0 (Version None)
Quarter: 2011Q1

REPORT INFORMATION
  Report Type: 
  Country: None (occurrence: None)
  Receive Date: 20110201
  Receipt Date: 20110201
  Transmission Date: 20110831
  Serious: Yes (Hospitalization, Other)
  Sender: FDA-Public Use
  Company Number: None

PATIENT
  Age: 56 Year
  Sex: Female
  Weight: 58.9676 kg

DRUGS (1)
  1. SINGULAIR [Suspect]
     Indication: SEASONAL ALLERGY
     Dosage: ONE TABLET DAILY PO
     Route: 048
     Dates: start: 20051010, end: 20110121

REACTIONS (17)
  - DIARRHOEA [None]
  - ANXIETY [None]
  - RESTLESSNESS [None]
  - HALLUCINATION [None]
  - SWOLLEN TONGUE [None]
  - MYALGIA [None]
  - IRRITABILITY [None]
  - NAUSEA [None]
  - DIZZINESS [None]
  - HEADACHE [None]
  - INSOMNIA [None]
  - ABNORMAL DREAMS [None]
  - DEPRESSION [None]
  - DYSPEPSIA [None]
  - PALPITATIONS [None]
  - MUSCLE SPASMS [None]
  - HYPOAESTHESIA [None]
